FAERS Safety Report 14807698 (Version 1)
Quarter: 2018Q2

REPORT INFORMATION
  Report Type: Spontaneous
  Country: GB (occurrence: GB)
  Receive Date: 20180425
  Receipt Date: 20180425
  Transmission Date: 20180711
  Serious: Yes (Other)
  Sender: FDA-Public Use
  Company Number: GB-MYLANLABS-2018M1026930

PATIENT
  Sex: Female

DRUGS (2)
  1. LAMOTRIGINE. [Concomitant]
     Active Substance: LAMOTRIGINE
     Indication: PRODUCT USED FOR UNKNOWN INDICATION
     Dosage: UNK,
  2. LEVETIRACETAM. [Suspect]
     Active Substance: LEVETIRACETAM
     Indication: GENERALISED TONIC-CLONIC SEIZURE
     Dosage: 1000 MG, QD, 500 MG, 2X/DAY (BID)

REACTIONS (6)
  - Fatigue [Recovering/Resolving]
  - Emotional disorder [Unknown]
  - Stress [Recovering/Resolving]
  - Anger [Unknown]
  - Somnolence [Recovering/Resolving]
  - Bipolar disorder [Unknown]
